FAERS Safety Report 4464361-X (Version None)
Quarter: 2004Q4

REPORT INFORMATION
  Report Type: 
  Country: None (occurrence: None)
  Receive Date: 20041001
  Receipt Date: 20040920
  Transmission Date: 20050328
  Serious: Yes (Hospitalization)
  Sender: FDA-Public Use
  Company Number: FR-MERCK-0409FRA00075

PATIENT
  Age: 59 Year
  Sex: Male

DRUGS (6)
  1. CEFTRIAXONE SODIUM [Concomitant]
     Indication: PNEUMONIA
     Route: 051
     Dates: start: 20040403, end: 20040406
  2. PRIMAXIN [Suspect]
     Indication: PNEUMONIA
     Route: 041
     Dates: start: 20040407, end: 20040419
  3. CIPROFLOXACIN HYDROCHLORIDE [Suspect]
     Indication: PNEUMONIA
     Route: 041
     Dates: start: 20040407, end: 20040421
  4. ENOXAPARIN SODIUM [Suspect]
     Route: 058
     Dates: start: 20040405, end: 20040424
  5. OFLOXACIN [Concomitant]
     Route: 065
     Dates: start: 20040403, end: 20040406
  6. VANCOMYCIN [Suspect]
     Indication: PNEUMONIA
     Route: 041
     Dates: start: 20040406, end: 20040419

REACTIONS (1)
  - DRUG ERUPTION [None]
